FAERS Safety Report 17325399 (Version 1)
Quarter: 2020Q1

REPORT INFORMATION
  Report Type: Spontaneous
  Country: US (occurrence: US)
  Receive Date: 20200127
  Receipt Date: 20200127
  Transmission Date: 20200409
  Serious: No
  Sender: FDA-Public Use
  Company Number: US-CHARTWELL PHARMACOVIGILANCE, LLC.-2079427

PATIENT
  Age: 63 Year
  Sex: Male
  Weight: 84.09 kg

DRUGS (2)
  1. DOXYCYCLINE HYCLATE. [Suspect]
     Active Substance: DOXYCYCLINE HYCLATE
     Route: 048
     Dates: start: 20190730, end: 20190731
  2. DOXYCYCLINE HYCLATE. [Suspect]
     Active Substance: DOXYCYCLINE HYCLATE
     Indication: LYME DISEASE
     Route: 048
     Dates: start: 20190730, end: 20190731

REACTIONS (2)
  - Renal pain [Recovering/Resolving]
  - Vomiting [Recovered/Resolved]

NARRATIVE: CASE EVENT DATE: 20190731
